FAERS Safety Report 10977073 (Version 2)
Quarter: 2015Q2

REPORT INFORMATION
  Report Type: Spontaneous
  Country: US (occurrence: US)
  Receive Date: 20150402
  Receipt Date: 20150410
  Transmission Date: 20150821
  Serious: Yes (Other)
  Sender: FDA-Public Use
  Company Number: US-JNJFOC-20150318844

PATIENT
  Sex: Male

DRUGS (2)
  1. CHILDRENS BENADRYL ALLERGY [Suspect]
     Active Substance: DIPHENHYDRAMINE HYDROCHLORIDE
     Indication: FOOD ALLERGY
     Dosage: SEVERAL TIMES EVERY DAY UNTIL HE WAS ABOUT 3 YEARS OLD
     Route: 065
  2. CHILDRENS BENADRYL ALLERGY [Suspect]
     Active Substance: DIPHENHYDRAMINE HYDROCHLORIDE
     Indication: FOOD ALLERGY
     Dosage: AS NEEDED
     Route: 065

REACTIONS (4)
  - Product use issue [Unknown]
  - Aphasia [Unknown]
  - Drug prescribing error [Unknown]
  - Autism [Unknown]
